FAERS Safety Report 6091336-X (Version None)
Quarter: 2009Q1

REPORT INFORMATION
  Report Type: 
  Country: None (occurrence: None)
  Receive Date: 20090220
  Receipt Date: 20090220
  Transmission Date: 20090719
  Serious: Yes (Hospitalization, Other)
  Sender: FDA-Public Use
  Company Number: None

PATIENT
  Age: 33 Year
  Sex: Female
  Weight: 72.5755 kg

DRUGS (1)
  1. TOPAMAX [Suspect]
     Indication: MIGRAINE
     Dosage: 250 MG 2X PO
     Route: 048
     Dates: start: 20061001, end: 20081207

REACTIONS (19)
  - ALOPECIA [None]
  - ANGER [None]
  - ARTHRALGIA [None]
  - ATONIC SEIZURES [None]
  - BODY TEMPERATURE DECREASED [None]
  - CONFUSIONAL STATE [None]
  - CYSTITIS [None]
  - DEPRESSION [None]
  - EATING DISORDER [None]
  - FALL [None]
  - FATIGUE [None]
  - FEELING COLD [None]
  - INSOMNIA [None]
  - MEMORY IMPAIRMENT [None]
  - MUSCULAR WEAKNESS [None]
  - PAIN [None]
  - PETIT MAL EPILEPSY [None]
  - SINUSITIS [None]
  - SPEECH DISORDER [None]
